FAERS Safety Report 7459636-6 (Version None)
Quarter: 2011Q2

REPORT INFORMATION
  Report Type: 
  Country: None (occurrence: None)
  Receive Date: 20110505
  Receipt Date: 20110420
  Transmission Date: 20111010
  Serious: Yes (Other)
  Sender: FDA-Public Use
  Company Number: PHFR2011GB02839

PATIENT
  Age: 55 Year
  Sex: Female

DRUGS (2)
  1. TRANSTEC [Interacting]
     Indication: PAIN
     Dosage: 140 UG / 1-1.5 HOURS
     Route: 062
     Dates: start: 20100222, end: 20100901
  2. TEGRETOL [Suspect]
     Dosage: UNK
     Route: 065

REACTIONS (4)
  - APPLICATION SITE EXFOLIATION [None]
  - APPLICATION SITE PRURITUS [None]
  - APPLICATION SITE DISCOLOURATION [None]
  - DRUG INTERACTION [None]
